FAERS Safety Report 6207652-4 (Version None)
Quarter: 2009Q2

REPORT INFORMATION
  Report Type: 
  Country: None (occurrence: None)
  Receive Date: 20090528
  Receipt Date: 20090520
  Transmission Date: 20091009
  Serious: Yes (Other)
  Sender: FDA-Public Use
  Company Number: KR-SANOFI-SYNTHELABO-A01200905301

PATIENT
  Age: 74 Year
  Sex: Male

DRUGS (3)
  1. FLUOROURACIL [Concomitant]
     Indication: COLORECTAL CANCER
     Route: 042
  2. LEUCOVORIN CALCIUM [Concomitant]
     Indication: COLORECTAL CANCER
     Route: 042
  3. ELOXATIN [Suspect]
     Indication: COLORECTAL CANCER
     Route: 042

REACTIONS (1)
  - LOSS OF CONSCIOUSNESS [None]
